FAERS Safety Report 8819301 (Version 1)
Quarter: 2012Q4

REPORT INFORMATION
  Report Type: Spontaneous
  Country: DK (occurrence: None)
  Receive Date: 20121003
  Receipt Date: 20121003
  Transmission Date: 20130627
  Serious: Yes (Other)
  Sender: FDA-Public Use
  Company Number: 2012MA011776

PATIENT
  Sex: Male

DRUGS (4)
  1. ROPINIROLE [Suspect]
     Indication: RESTLESS LEG SYNDROME
     Route: 048
     Dates: start: 2010, end: 20120706
  2. FLUOXETINE [Concomitant]
  3. FEXOFENADINE [Concomitant]
  4. MONTELUKAST [Concomitant]

REACTIONS (4)
  - Obsessive-compulsive disorder [None]
  - Logorrhoea [None]
  - Sexual activity increased [None]
  - Cognitive disorder [None]
